FAERS Safety Report 19798727 (Version 1)
Quarter: 2021Q3

REPORT INFORMATION
  Report Type: Spontaneous
  Country: US (occurrence: US)
  Receive Date: 20210907
  Receipt Date: 20210907
  Transmission Date: 20211014
  Serious: Yes (Other)
  Sender: FDA-Public Use
  Company Number: US-PFIZER INC-202101127253

PATIENT
  Age: 62 Year
  Sex: Female
  Weight: 95.24 kg

DRUGS (12)
  1. SOLIFENACIN SUCCINATE ROWEX [Concomitant]
     Dosage: 10 MG
  2. DEXILANT [Concomitant]
     Active Substance: DEXLANSOPRAZOLE
     Dosage: 30 MG (30 MG CAP DR BP)
  3. XARELTO [Concomitant]
     Active Substance: RIVAROXABAN
     Dosage: 10 MG
  4. LETROZOLE. [Concomitant]
     Active Substance: LETROZOLE
  5. MELATONIN [Concomitant]
     Active Substance: MELATONIN
  6. IBRANCE [Suspect]
     Active Substance: PALBOCICLIB
     Indication: BREAST CANCER FEMALE
     Dosage: 125 MG, CYCLIC
     Route: 048
     Dates: start: 2019
  7. CALCIUM + D DUETTO [Concomitant]
     Active Substance: CALCIUM\CHOLECALCIFEROL
     Dosage: 500 MG (1000 TAB CHEW)
  8. LEVOTHYROXINE SODIUM. [Concomitant]
     Active Substance: LEVOTHYROXINE SODIUM
     Dosage: 100 UG
  9. STOOL SOFTENER (DOCUSATE) [Concomitant]
     Active Substance: DOCUSATE
     Dosage: 100 MG
  10. PROBIOTIC 10 [Concomitant]
     Active Substance: DIETARY SUPPLEMENT\PROBIOTICS
  11. ALLEGRA D?12 HOUR [Concomitant]
     Active Substance: FEXOFENADINE HYDROCHLORIDE\PSEUDOEPHEDRINE HYDROCHLORIDE
  12. MONTELUKAST SODIUM AND LEVOCETIRIZINE DIHYDROCHLORIDE [Concomitant]
     Dosage: 10 MG

REACTIONS (1)
  - Pulmonary thrombosis [Unknown]
